FAERS Safety Report 23103985 (Version 2)
Quarter: 2023Q4

REPORT INFORMATION
  Report Type: Report from Study
  Country: US (occurrence: US)
  Receive Date: 20231025
  Receipt Date: 20231212
  Transmission Date: 20240110
  Serious: Yes (Death)
  Sender: FDA-Public Use
  Company Number: US-OTTER-US-2023AST000481

PATIENT
  Age: 81 Year
  Sex: Male

DRUGS (1)
  1. OTREXUP [Suspect]
     Active Substance: METHOTREXATE
     Indication: Rheumatoid arthritis
     Dosage: 15 MG, WEEKLY
     Route: 058
     Dates: start: 202102

REACTIONS (1)
  - Death [Fatal]

NARRATIVE: CASE EVENT DATE: 20230925
